FAERS Safety Report 7305148-X (Version None)
Quarter: 2011Q1

REPORT INFORMATION
  Report Type: 
  Country: None (occurrence: None)
  Receive Date: 20110222
  Receipt Date: 20110216
  Transmission Date: 20110831
  Serious: Yes (Hospitalization, Other)
  Sender: FDA-Public Use
  Company Number: US-B.I. PHARMACEUTICALS,INC./RIDGEFIELD-2011-BP-03627BP

PATIENT
  Sex: Female

DRUGS (1)
  1. SPIRIVA [Suspect]
     Indication: CHRONIC OBSTRUCTIVE PULMONARY DISEASE
     Dosage: 18 MCG
     Route: 055
     Dates: start: 20100801, end: 20101008

REACTIONS (9)
  - LUNG DISORDER [None]
  - INSOMNIA [None]
  - HEADACHE [None]
  - MUSCULOSKELETAL PAIN [None]
  - PNEUMONIA [None]
  - BLISTER [None]
  - MYOCARDIAL INFARCTION [None]
  - DYSPNOEA [None]
  - ANXIETY DISORDER [None]
